FAERS Safety Report 9318036 (Version 3)
Quarter: 2013Q4

REPORT INFORMATION
  Report Type: Spontaneous
  Country: US (occurrence: US)
  Receive Date: 20130530
  Receipt Date: 20131126
  Transmission Date: 20140711
  Serious: Yes (Other)
  Sender: FDA-Public Use
  Company Number: US-GLAXOSMITHKLINE-A1001300A

PATIENT
  Age: 64 Year
  Sex: Female

DRUGS (16)
  1. ADVAIR [Suspect]
     Indication: CHRONIC OBSTRUCTIVE PULMONARY DISEASE
     Dosage: 1PUFF TWICE PER DAY
     Route: 055
     Dates: start: 20091216
  2. VENTOLIN [Suspect]
     Indication: CHRONIC OBSTRUCTIVE PULMONARY DISEASE
     Dosage: 2PUFF FOUR TIMES PER DAY
     Route: 055
     Dates: start: 20121101
  3. CITALOPRAM [Concomitant]
  4. LAMOTRIGINE [Concomitant]
  5. ATROVENT [Concomitant]
  6. OMEPRAZOLE [Concomitant]
  7. CLONAZEPAM [Concomitant]
  8. FLUTICASONE NASAL SPRAY [Concomitant]
  9. CLARITIN D [Concomitant]
  10. FLAX SEED OIL [Concomitant]
  11. FISH OIL [Concomitant]
  12. MULTIVITAMIN [Concomitant]
  13. CALCIUM [Concomitant]
  14. NEBULIZER [Concomitant]
  15. SOLUMEDROL [Concomitant]
  16. PROVENTIL [Concomitant]

REACTIONS (8)
  - Road traffic accident [Unknown]
  - Condition aggravated [Unknown]
  - Cough [Unknown]
  - Chest discomfort [Unknown]
  - Drug ineffective [Unknown]
  - Product quality issue [Unknown]
  - Headache [Unknown]
  - Overdose [Unknown]
